FAERS Safety Report 8556451-7 (Version None)
Quarter: 2012Q3

REPORT INFORMATION
  Report Type: 
  Country: None (occurrence: None)
  Receive Date: 20120801
  Receipt Date: 20120727
  Transmission Date: 20120928
  Serious: Yes (Other)
  Sender: FDA-Public Use
  Company Number: PHHY2012CA062296

PATIENT
  Sex: Male

DRUGS (6)
  1. PAXIL [Concomitant]
     Dosage: 60 MG, QD
  2. CLOZARIL [Suspect]
     Dosage: 450 MG, QHS
     Dates: start: 20100101
  3. NEUPOGEN [Concomitant]
     Dosage: UNK UKN, UNK
  4. RIVOTRIL [Concomitant]
     Dosage: 1.5 MG,(1 MG AM, 0.5 MG AT LUNCH)
  5. CLOZARIL [Suspect]
     Indication: SCHIZOPHRENIA
     Dosage: UNK UKN, UNK
     Route: 048
     Dates: start: 20020506
  6. RISPERDAL [Concomitant]
     Dosage: 1 MG, TID

REACTIONS (2)
  - NON-HODGKIN'S LYMPHOMA METASTATIC [None]
  - NEOPLASM MALIGNANT [None]
